FAERS Safety Report 7936817 (Version 3)
Quarter: 2012Q4

REPORT INFORMATION
  Report Type: 
  Country: US (occurrence: US)
  Receive Date: 20110509
  Receipt Date: 20120913
  Transmission Date: 20130627
  Serious: Yes (Other)
  Sender: FDA-Public Use
  Company Number: US-BAYER-2011-039064

PATIENT
  Age: 22 Year
  Sex: Female
  Weight: 61.22 kg

DRUGS (2)
  1. OCELLA [Suspect]
     Indication: CONTRACEPTION
     Dosage: UNK
     Dates: start: 200901, end: 201005
  2. OCELLA [Suspect]
     Indication: PREMENSTRUAL SYNDROME

REACTIONS (4)
  - Pulmonary embolism [None]
  - Chest pain [None]
  - Injury [None]
  - Pain [None]
